FAERS Safety Report 5427796-4 (Version None)
Quarter: 2007Q3

REPORT INFORMATION
  Report Type: 
  Country: None (occurrence: None)
  Receive Date: 20070828
  Receipt Date: 20070817
  Transmission Date: 20080115
  Serious: Yes (Hospitalization)
  Sender: FDA-Public Use
  Company Number: TW-ROCHE-511938

PATIENT
  Age: 66 Year
  Sex: Female
  Weight: 58 kg

DRUGS (2)
  1. CAPECITABINE [Suspect]
     Indication: METASTATIC GASTRIC CANCER
     Dosage: GIVEN ON DAY ONE TO TEN EVERY TWO WEEKS, FOLLOWED BY FOUR DAYS REST.
     Route: 048
     Dates: start: 20070324
  2. OXALIPLATIN [Suspect]
     Indication: METASTATIC GASTRIC CANCER
     Dosage: GIVEN ON DAY ONE OF EACH TWO-WEEK-CYCLE. FORM REPORTED AS FLUID.
     Route: 042
     Dates: start: 20070324

REACTIONS (1)
  - HYDRONEPHROSIS [None]
